FAERS Safety Report 7222434-2 (Version None)
Quarter: 2011Q1

REPORT INFORMATION
  Report Type: 
  Country: None (occurrence: None)
  Receive Date: 20110112
  Receipt Date: 20101228
  Transmission Date: 20110831
  Serious: Yes (Death, Other)
  Sender: FDA-Public Use
  Company Number: IT-CELGENEUS-083-20785-11010011

PATIENT

DRUGS (19)
  1. THALIDOMIDE [Suspect]
     Indication: MULTIPLE MYELOMA
     Route: 048
  2. THALIDOMIDE [Suspect]
     Route: 048
  3. DEXAMETHASONE [Suspect]
     Route: 065
  4. MELPHALAN [Concomitant]
     Route: 065
  5. ACYCLOVIR [Concomitant]
     Route: 065
  6. DEXAMETHASONE [Suspect]
     Indication: MULTIPLE MYELOMA
     Route: 065
  7. BORTEZOMIB [Suspect]
     Indication: MULTIPLE MYELOMA
     Route: 065
  8. CYCLOPHOSPHAMIDE [Concomitant]
     Dosage: 4 G/M2
     Route: 065
  9. NEUPOGEN [Concomitant]
     Route: 065
  10. THALIDOMIDE [Suspect]
     Route: 048
  11. DEXAMETHASONE [Suspect]
     Route: 065
  12. DEXAMETHASONE [Suspect]
     Route: 065
  13. BORTEZOMIB [Suspect]
     Route: 065
  14. BORTEZOMIB [Suspect]
     Route: 065
  15. DEXAMETHASONE [Suspect]
     Route: 065
  16. NEUPOGEN [Concomitant]
     Route: 065
  17. THALIDOMIDE [Suspect]
     Route: 048
  18. THALIDOMIDE [Suspect]
     Route: 048
  19. BORTEZOMIB [Suspect]
     Route: 065

REACTIONS (13)
  - GASTROINTESTINAL DISORDER [None]
  - TOXICITY TO VARIOUS AGENTS [None]
  - DEATH [None]
  - LIVER DISORDER [None]
  - CONSTIPATION [None]
  - OEDEMA [None]
  - DEEP VEIN THROMBOSIS [None]
  - CARDIAC DISORDER [None]
  - NEUROPATHY PERIPHERAL [None]
  - RASH [None]
  - DISEASE PROGRESSION [None]
  - INFECTION [None]
  - PYREXIA [None]
